FAERS Safety Report 6439178-7 (Version None)
Quarter: 2009Q4

REPORT INFORMATION
  Report Type: 
  Country: None (occurrence: None)
  Receive Date: 20091113
  Receipt Date: 20091110
  Transmission Date: 20100525
  Serious: Yes (Hospitalization)
  Sender: FDA-Public Use
  Company Number: US-BRISTOL-MYERS SQUIBB COMPANY-14853048

PATIENT
  Age: 47 Year
  Sex: Female

DRUGS (5)
  1. COUMADIN [Suspect]
     Dosage: ALSO TAKEN 12.5 MG 4XW
  2. LOVENOX [Suspect]
     Indication: PULMONARY THROMBOSIS
     Dosage: ENOXAPARIN SOLN FOR INJ;150MG FROM 22APR09-19MAY09;90MG BID FROM 20JUN09
     Dates: start: 20090422
  3. LOVENOX [Suspect]
     Indication: BLOOD VISCOSITY INCREASED
     Dosage: ENOXAPARIN SOLN FOR INJ;150MG FROM 22APR09-19MAY09;90MG BID FROM 20JUN09
     Dates: start: 20090422
  4. PREDNISONE [Concomitant]
  5. VITAMINS [Concomitant]

REACTIONS (6)
  - INJECTION SITE HAEMORRHAGE [None]
  - INJECTION SITE RASH [None]
  - INJECTION SITE SWELLING [None]
  - PLATELET COUNT DECREASED [None]
  - PYREXIA [None]
  - URTICARIA [None]
